FAERS Safety Report 9895586 (Version 1)
Quarter: 2014Q1

REPORT INFORMATION
  Report Type: Spontaneous
  Country: US (occurrence: US)
  Receive Date: 20140213
  Receipt Date: 20140213
  Transmission Date: 20141002
  Serious: No
  Sender: FDA-Public Use
  Company Number: US-BRISTOL-MYERS SQUIBB COMPANY-17375890

PATIENT
  Age: 61 Year
  Sex: Male
  Weight: 108.8 kg

DRUGS (11)
  1. ABATACEPT SUBQ INJECTION 125MG/ML [Suspect]
     Indication: RHEUMATOID ARTHRITIS
     Dosage: 1DF:125MG/ML,RESATRTED ON AUG12
     Route: 058
     Dates: start: 201207
  2. AMLODIPINE [Concomitant]
  3. ENALAPRIL [Concomitant]
  4. METFORMIN [Concomitant]
  5. OMEPRAZOLE [Concomitant]
  6. OXAZEPAM [Concomitant]
  7. PLAQUENIL [Concomitant]
  8. SIMVASTATIN [Concomitant]
  9. SINGULAIR [Concomitant]
  10. TAMSULOSIN [Concomitant]
  11. TRAMADOL [Concomitant]

REACTIONS (1)
  - Sinusitis [Unknown]
